FAERS Safety Report 26044492 (Version 2)
Quarter: 2025Q4

REPORT INFORMATION
  Report Type: Spontaneous
  Country: US (occurrence: US)
  Receive Date: 20251114
  Receipt Date: 20251208
  Transmission Date: 20260118
  Serious: No
  Sender: CIPLA
  Company Number: US-CIPLA LTD.-2025US14083

PATIENT

DRUGS (4)
  1. ALBUTEROL [Suspect]
     Active Substance: ALBUTEROL
     Indication: Chronic obstructive pulmonary disease
     Dosage: UNK, ONE OR TWO PUFFS EVERY 4 TO 6 HOURS (ORAL ROUTE), AS NEEDED, PRN
  2. ALBUTEROL [Suspect]
     Active Substance: ALBUTEROL
     Dosage: UNK, ONE OR TWO PUFFS EVERY 4 TO 6 HOURS (ORAL ROUTE), AS NEEDED, PRN
  3. ALBUTEROL [Suspect]
     Active Substance: ALBUTEROL
     Dosage: UNK, ONE OR TWO PUFFS EVERY 4 TO 6 HOURS (ORAL ROUTE), AS NEEDED, PRN
     Dates: start: 202510
  4. ALBUTEROL [Suspect]
     Active Substance: ALBUTEROL
     Dosage: UNK, ONE OR TWO PUFFS EVERY 4 TO 6 HOURS (ORAL ROUTE), AS NEEDED, PRN (REPLACED INHALER)
     Dates: start: 2025

REACTIONS (4)
  - Drug dose omission by device [Unknown]
  - Device occlusion [Unknown]
  - Device delivery system issue [Unknown]
  - Device mechanical issue [Unknown]

NARRATIVE: CASE EVENT DATE: 20251031
